FAERS Safety Report 6273965-3 (Version None)
Quarter: 2009Q3

REPORT INFORMATION
  Report Type: 
  Country: None (occurrence: None)
  Receive Date: 20090720
  Receipt Date: 20090706
  Transmission Date: 20100115
  Serious: Yes (Other)
  Sender: FDA-Public Use
  Company Number: DE-ELI_LILLY_AND_COMPANY-DE200905001125

PATIENT
  Age: 14 Year
  Sex: Male

DRUGS (4)
  1. STRATTERA [Suspect]
     Indication: ATTENTION DEFICIT/HYPERACTIVITY DISORDER
     Dosage: 20 MG, UNKNOWN
     Route: 048
     Dates: start: 20090506, end: 20070101
  2. STRATTERA [Suspect]
     Dosage: 1.2 MG/KG, UNKNOWN
     Route: 048
     Dates: start: 20070101, end: 20071105
  3. MEDIKINET [Concomitant]
     Dosage: 30-40MG, UNKNOWN
     Route: 065
  4. RISPERIDONE [Concomitant]
     Dosage: UNK, UNKNOWN
     Route: 065
     Dates: start: 20081031

REACTIONS (1)
  - SUICIDAL BEHAVIOUR [None]
